FAERS Safety Report 6822820-6 (Version None)
Quarter: 2010Q3

REPORT INFORMATION
  Report Type: 
  Country: None (occurrence: None)
  Receive Date: 20100706
  Receipt Date: 20100706
  Transmission Date: 20110219
  Serious: Yes (Other)
  Sender: FDA-Public Use
  Company Number: None

PATIENT
  Age: 28 Year
  Sex: Female

DRUGS (5)
  1. ONDANSETRON [Suspect]
     Indication: NAUSEA
     Dosage: 4 MG 1X PO
     Route: 048
     Dates: start: 20091209, end: 20091209
  2. TRAZODONE [Concomitant]
  3. MULTI-VITAMIN [Concomitant]
  4. OXYCODONE HCL [Concomitant]
  5. CARISOPRODOL [Concomitant]

REACTIONS (4)
  - DYSPNOEA [None]
  - FLUSHING [None]
  - URTICARIA [None]
  - WHEEZING [None]
